FAERS Safety Report 24872012 (Version 1)
Quarter: 2025Q1

REPORT INFORMATION
  Report Type: Spontaneous
  Country: US (occurrence: US)
  Receive Date: 20250122
  Receipt Date: 20250122
  Transmission Date: 20250408
  Serious: Yes (Hospitalization, Other)
  Sender: GLAND PHARMA LTD
  Company Number: US-GLANDPHARMA-US-2025GLNLIT00098

PATIENT
  Age: 9 Year
  Sex: Male

DRUGS (10)
  1. MIDAZOLAM [Suspect]
     Active Substance: MIDAZOLAM
     Indication: Febrile infection-related epilepsy syndrome
     Route: 065
  2. KETAMINE HYDROCHLORIDE [Suspect]
     Active Substance: KETAMINE HYDROCHLORIDE
     Indication: Febrile infection-related epilepsy syndrome
     Route: 065
  3. PENTOBARBITAL [Suspect]
     Active Substance: PENTOBARBITAL
     Indication: Febrile infection-related epilepsy syndrome
     Route: 065
  4. PENTOBARBITAL [Suspect]
     Active Substance: PENTOBARBITAL
     Route: 065
  5. PENTOBARBITAL [Suspect]
     Active Substance: PENTOBARBITAL
     Route: 065
  6. ANAKINRA [Concomitant]
     Active Substance: ANAKINRA
     Indication: Febrile infection-related epilepsy syndrome
     Dosage: HD 14 DAY
     Route: 058
  7. ANAKINRA [Concomitant]
     Active Substance: ANAKINRA
     Dosage: HD 22 DAY
     Route: 042
  8. METHYLPREDNISOLONE [Concomitant]
     Active Substance: METHYLPREDNISOLONE
     Indication: Febrile infection-related epilepsy syndrome
     Route: 042
  9. IMMUNE GLOBULIN [Concomitant]
     Indication: Febrile infection-related epilepsy syndrome
     Route: 042
  10. DEXAMETHASONE [Concomitant]
     Active Substance: DEXAMETHASONE
     Route: 037

REACTIONS (4)
  - Impaired gastric emptying [Unknown]
  - Hypertension [Unknown]
  - Hypotension [Unknown]
  - Product use in unapproved indication [Unknown]
